FAERS Safety Report 16047564 (Version 4)
Quarter: 2019Q2

REPORT INFORMATION
  Report Type: Report from Study
  Country: CA (occurrence: CA)
  Receive Date: 20190307
  Receipt Date: 20190401
  Transmission Date: 20190711
  Serious: Yes (Other)
  Sender: FDA-Public Use
  Company Number: CA-JNJFOC-20190304573

PATIENT
  Age: 54 Year
  Sex: Male
  Weight: 94.7 kg

DRUGS (8)
  1. DEXILANT [Concomitant]
     Active Substance: DEXLANSOPRAZOLE
     Route: 048
  2. VERAPAMIL [Concomitant]
     Active Substance: VERAPAMIL HYDROCHLORIDE
     Route: 048
  3. AMITRIPTYLINE [Concomitant]
     Active Substance: AMITRIPTYLINE
     Route: 048
  4. COVERSYL [Concomitant]
     Active Substance: PERINDOPRIL
     Route: 048
  5. LEFLUNOMIDE. [Concomitant]
     Active Substance: LEFLUNOMIDE
     Route: 048
  6. INDAPAMIDE. [Concomitant]
     Active Substance: INDAPAMIDE
     Route: 048
  7. SIMPONI [Suspect]
     Active Substance: GOLIMUMAB
     Indication: RHEUMATOID ARTHRITIS
     Route: 042
     Dates: start: 20170517, end: 20190320
  8. OXAZEPAM. [Concomitant]
     Active Substance: OXAZEPAM
     Route: 048

REACTIONS (3)
  - Rheumatoid arthritis [Not Recovered/Not Resolved]
  - Drug ineffective [Unknown]
  - Pneumonia [Recovered/Resolved]

NARRATIVE: CASE EVENT DATE: 20190109
